FAERS Safety Report 8921825 (Version 1)
Quarter: 2012Q4

REPORT INFORMATION
  Report Type: 
  Country: US (occurrence: US)
  Receive Date: 20121121
  Receipt Date: 20121121
  Transmission Date: 20130627
  Serious: No
  Sender: FDA-Public Use
  Company Number: US-PFIZER INC-2012278348

PATIENT
  Age: 59 Year
  Sex: Female
  Weight: 89.8 kg

DRUGS (19)
  1. ENBREL [Suspect]
     Indication: RHEUMATOID ARTHRITIS
     Dosage: 50 mg, qwk
     Dates: start: 20121017
  2. METHOTREXATE SODIUM [Suspect]
     Dosage: UNK
  3. PLAQUENIL [Suspect]
     Dosage: 200 mg, bid
     Route: 048
  4. PREMARIN [Concomitant]
     Dosage: 1.25 mg, qd
     Route: 048
  5. XANAX [Concomitant]
     Dosage: 0.5 mg, tid
  6. NEURONTIN [Concomitant]
     Dosage: 100 mg, tid, One tab at bed time for three days, twice a day for three days, and three times a day
     Route: 048
  7. TRILIPIX [Concomitant]
     Dosage: 135 mg, qd
     Route: 048
  8. NORCO [Concomitant]
     Indication: PAIN
     Dosage: 7.5-325 mg, every six hours as needed
     Route: 048
  9. DELTASONE [Concomitant]
     Dosage: 10 mg, 10 mg tab for 10 days and 5mg daily
  10. MOBIC [Concomitant]
     Dosage: 15 mg, qd
     Route: 048
  11. RESTORIL [Concomitant]
     Indication: INSOMNIA
     Dosage: 15 mg, prn
  12. ULTRAM [Concomitant]
     Dosage: 50 mg,every six hours as needed
     Route: 048
  13. FOLVITE [Concomitant]
     Dosage: 1 mg, qd
     Route: 048
  14. TENORMIN [Concomitant]
     Dosage: 50 mg, qd
     Route: 048
  15. LOVAZA [Concomitant]
     Dosage: 1 g, bid
     Route: 048
  16. PRILOSEC [Concomitant]
     Dosage: 20 mg, qd
     Route: 048
  17. ALDACTONE [Concomitant]
     Dosage: 50 mg, qd
     Route: 048
  18. WELCHOL [Concomitant]
     Dosage: 625 mg, three tablets in morning and three tablets in night
  19. SYNTHROID [Concomitant]
     Dosage: 100 mug, qd
     Route: 048

REACTIONS (9)
  - Rash erythematous [Not Recovered/Not Resolved]
  - Pain [Not Recovered/Not Resolved]
  - Arthralgia [Recovering/Resolving]
  - Musculoskeletal pain [Recovering/Resolving]
  - Feeling abnormal [Recovering/Resolving]
  - Musculoskeletal stiffness [Recovering/Resolving]
  - Fatigue [Recovering/Resolving]
  - Arthritis [Unknown]
  - Joint swelling [Unknown]
